FAERS Safety Report 18001003 (Version 1)
Quarter: 2020Q3

REPORT INFORMATION
  Report Type: Spontaneous
  Country: CA (occurrence: CA)
  Receive Date: 20200709
  Receipt Date: 20200709
  Transmission Date: 20201103
  Serious: Yes (Life-Threatening)
  Sender: FDA-Public Use
  Company Number: CA-TEVA-2020-CA-1797239

PATIENT
  Age: 3 Year
  Sex: Male
  Weight: 12 kg

DRUGS (21)
  1. MAGNESIUM [Concomitant]
     Active Substance: MAGNESIUM
  2. CHOLECALCIFEROL [Concomitant]
     Active Substance: CHOLECALCIFEROL
  3. MORPHINE [Concomitant]
     Active Substance: MORPHINE
  4. MULTIVITAMIN + MINERAL [Concomitant]
     Active Substance: MINERALS\VITAMINS
  5. ONDANSETRON [Concomitant]
     Active Substance: ONDANSETRON
  6. PHOSPHATES SOLUTION [Concomitant]
  7. CALCIUM [Concomitant]
     Active Substance: CALCIUM
  8. POTASSIUM [Concomitant]
     Active Substance: POTASSIUM
  9. ACETAMINOPHEN. [Concomitant]
     Active Substance: ACETAMINOPHEN
  10. FILGRASTIM [Concomitant]
     Active Substance: FILGRASTIM
  11. HEPARIN SODIUM. [Concomitant]
     Active Substance: HEPARIN SODIUM
  12. SULFAMETHOXAZOLE AND TRIMETHOPRIM [Concomitant]
     Active Substance: SULFAMETHOXAZOLE\TRIMETHOPRIM
  13. DIPHENHYDRAMINE. [Concomitant]
     Active Substance: DIPHENHYDRAMINE
  14. EMEND [Concomitant]
     Active Substance: APREPITANT
  15. MELATONIN [Concomitant]
     Active Substance: MELATONIN
  16. METOCLOPRAMIDE. [Concomitant]
     Active Substance: METOCLOPRAMIDE
  17. ETOPOSIDE. [Suspect]
     Active Substance: ETOPOSIDE
     Indication: NEUROBLASTOMA
     Route: 042
  18. DIMENHYDRINATE. [Concomitant]
     Active Substance: DIMENHYDRINATE
  19. LUGOLS SOL [Concomitant]
  20. CISPLATIN INJECTION [Suspect]
     Active Substance: CISPLATIN
     Indication: NEUROBLASTOMA
     Route: 042
  21. DEXAMETHASONE. [Concomitant]
     Active Substance: DEXAMETHASONE

REACTIONS (8)
  - Hypokalaemia [Unknown]
  - Pancytopenia [Unknown]
  - Aplastic anaemia [Unknown]
  - Blood magnesium abnormal [Unknown]
  - Blood phosphorus abnormal [Unknown]
  - Dehydration [Unknown]
  - Diarrhoea [Unknown]
  - Neutropenia [Unknown]
